FAERS Safety Report 16662999 (Version 1)
Quarter: 2019Q3

REPORT INFORMATION
  Report Type: Report from Study
  Country: US (occurrence: US)
  Receive Date: 20190802
  Receipt Date: 20190802
  Transmission Date: 20191004
  Serious: No
  Sender: FDA-Public Use
  Company Number: US-EXELIXIS-CABO-19021481

PATIENT
  Age: 59 Year
  Sex: Male

DRUGS (1)
  1. CABOMETYX [Suspect]
     Active Substance: CABOZANTINIB S-MALATE
     Indication: RENAL CANCER
     Dosage: 60 MG, QD
     Route: 048
     Dates: start: 20190319

REACTIONS (5)
  - Peripheral swelling [Unknown]
  - Vomiting [Unknown]
  - Blister [Unknown]
  - Nasal dryness [Unknown]
  - Nausea [Unknown]

NARRATIVE: CASE EVENT DATE: 201905
